FAERS Safety Report 7176422-5 (Version None)
Quarter: 2010Q4

REPORT INFORMATION
  Report Type: 
  Country: None (occurrence: None)
  Receive Date: 20101220
  Receipt Date: 20101209
  Transmission Date: 20110411
  Serious: Yes (Other)
  Sender: FDA-Public Use
  Company Number: US-RB-016823-10

PATIENT
  Age: 76 Year
  Sex: Female

DRUGS (4)
  1. MUCINEX DM [Suspect]
     Route: 048
     Dates: start: 20101207
  2. MUCINEX DM [Suspect]
     Route: 048
     Dates: start: 20101208
  3. ZITHROMAX [Concomitant]
     Indication: MALAISE
  4. MICARDIS [Concomitant]
     Indication: HYPERTENSION

REACTIONS (1)
  - HYPERTENSION [None]
